FAERS Safety Report 8882300 (Version 3)
Quarter: 2012Q4

REPORT INFORMATION
  Report Type: 
  Country: US (occurrence: US)
  Receive Date: 20121102
  Receipt Date: 20121217
  Transmission Date: 20130627
  Serious: No
  Sender: FDA-Public Use
  Company Number: US-VERTEX PHARMACEUTICAL INC.-2012-023866

PATIENT
  Age: 63 None
  Sex: Male
  Weight: 104 kg

DRUGS (3)
  1. VX-950 (TELAPREVIR) [Suspect]
     Indication: HEPATITIS C
     Dosage: 750 mg, tid
     Route: 048
     Dates: start: 20121014
  2. RIBAVIRIN [Concomitant]
     Indication: HEPATITIS C
     Dosage: 600 mg, bid
     Route: 048
     Dates: start: 20121014
  3. PEGASYS [Concomitant]
     Indication: HEPATITIS C
     Dosage: 180 ?g,qw
     Route: 058
     Dates: start: 20121014

REACTIONS (16)
  - Bronchitis [Not Recovered/Not Resolved]
  - Headache [Not Recovered/Not Resolved]
  - Abdominal distension [Not Recovered/Not Resolved]
  - Dyspepsia [Not Recovered/Not Resolved]
  - Productive cough [Not Recovered/Not Resolved]
  - Decreased appetite [Not Recovered/Not Resolved]
  - Feeling hot [Not Recovered/Not Resolved]
  - Feeling cold [Not Recovered/Not Resolved]
  - Fatigue [Not Recovered/Not Resolved]
  - Asthenia [Not Recovered/Not Resolved]
  - Anaemia [Not Recovered/Not Resolved]
  - Anal inflammation [Not Recovered/Not Resolved]
  - Anal haemorrhage [Not Recovered/Not Resolved]
  - Diarrhoea [Not Recovered/Not Resolved]
  - Nausea [Not Recovered/Not Resolved]
  - Vomiting [Not Recovered/Not Resolved]
